FAERS Safety Report 6574077-1 (Version None)
Quarter: 2010Q1

REPORT INFORMATION
  Report Type: 
  Country: None (occurrence: None)
  Receive Date: 20100208
  Receipt Date: 20100126
  Transmission Date: 20100710
  Serious: Yes (Other)
  Sender: FDA-Public Use
  Company Number: JP-BAYER-200713197GDS

PATIENT
  Age: 57 Year
  Sex: Male

DRUGS (2)
  1. GLUCOBAY [Suspect]
     Indication: DIABETES MELLITUS
     Route: 048
  2. ANTIBIOTICS [Concomitant]
     Indication: BRONCHITIS

REACTIONS (1)
  - PORTAL VENOUS GAS [None]
